FAERS Safety Report 8052836-6 (Version None)
Quarter: 2012Q1

REPORT INFORMATION
  Report Type: 
  Country: None (occurrence: None)
  Receive Date: 20120118
  Receipt Date: 20120113
  Transmission Date: 20120608
  Serious: Yes (Other)
  Sender: FDA-Public Use
  Company Number: PHHY2011BR27954

PATIENT
  Sex: Female

DRUGS (1)
  1. DIOVAN HCT [Suspect]
     Dosage: 1 DF (320/12.5MG), DAILY
     Route: 048

REACTIONS (4)
  - OEDEMA PERIPHERAL [None]
  - ERYTHEMA [None]
  - ARTHRALGIA [None]
  - ABASIA [None]
